FAERS Safety Report 9932622 (Version 1)
Quarter: 2014Q1

REPORT INFORMATION
  Report Type: Spontaneous
  Country: US (occurrence: US)
  Receive Date: 20140228
  Receipt Date: 20140228
  Transmission Date: 20141002
  Serious: No
  Sender: FDA-Public Use
  Company Number: US-ABBVIE-13P-163-1099336-00

PATIENT
  Age: 58 Year
  Sex: Male
  Weight: 99.88 kg

DRUGS (3)
  1. ANDROGEL [Suspect]
     Indication: BLOOD TESTOSTERONE DECREASED
     Dosage: PACKETS
     Dates: start: 2012, end: 2013
  2. ANDROGEL [Suspect]
     Dates: start: 201305
  3. VITAMIN B12/HCG [Concomitant]
     Indication: PRODUCT USED FOR UNKNOWN INDICATION

REACTIONS (1)
  - Application site pain [Recovered/Resolved]
